FAERS Safety Report 24778806 (Version 1)
Quarter: 2024Q4

REPORT INFORMATION
  Report Type: Spontaneous
  Country: KR (occurrence: KR)
  Receive Date: 20241226
  Receipt Date: 20241226
  Transmission Date: 20250114
  Serious: Yes (Other)
  Sender: BAXTER
  Company Number: KR-BAXTER-2024BAX029873

PATIENT

DRUGS (1)
  1. DESFLURANE [Suspect]
     Active Substance: DESFLURANE
     Route: 065

REACTIONS (2)
  - Unwanted awareness during anaesthesia [Unknown]
  - Wrong technique in device usage process [Unknown]

NARRATIVE: CASE EVENT DATE: 20241219
